FAERS Safety Report 23988598 (Version 6)
Quarter: 2025Q2

REPORT INFORMATION
  Report Type: Report from Study
  Country: CO (occurrence: CO)
  Receive Date: 20240619
  Receipt Date: 20250530
  Transmission Date: 20250716
  Serious: Yes (Hospitalization, Other)
  Sender: TAKEDA
  Company Number: CO-TAKEDA-2024TUS060280

PATIENT
  Age: 31 Year
  Sex: Female
  Weight: 45 kg

DRUGS (1)
  1. VEDOLIZUMAB [Suspect]
     Active Substance: VEDOLIZUMAB
     Indication: Colitis ulcerative
     Dates: start: 20210710, end: 20250410

REACTIONS (16)
  - Pulmonary oedema [Recovering/Resolving]
  - Rectal haemorrhage [Recovering/Resolving]
  - Diarrhoea haemorrhagic [Recovering/Resolving]
  - Rectal tenesmus [Unknown]
  - Haematochezia [Recovered/Resolved]
  - Pyrexia [Recovering/Resolving]
  - Anxiety [Unknown]
  - Weight decreased [Unknown]
  - Procedural pain [Unknown]
  - Maternal exposure during breast feeding [Unknown]
  - Decreased appetite [Recovering/Resolving]
  - Pregnancy [Recovered/Resolved]
  - Malaise [Unknown]
  - Rhinorrhoea [Unknown]
  - Oropharyngeal pain [Unknown]
  - Cough [Unknown]

NARRATIVE: CASE EVENT DATE: 20210721
